FAERS Safety Report 7266869-0 (Version None)
Quarter: 2011Q1

REPORT INFORMATION
  Report Type: 
  Country: None (occurrence: None)
  Receive Date: 20110120
  Receipt Date: 20110106
  Transmission Date: 20110831
  Serious: No
  Sender: FDA-Public Use
  Company Number: 011973

PATIENT
  Sex: Male
  Weight: 100.7 kg

DRUGS (9)
  1. L-DOPA (L-DOPA) [Suspect]
     Indication: PARKINSON'S DISEASE
     Dosage: 100 MG TID ORAL
     Route: 048
     Dates: start: 20050101
  2. THEOPHYLLINE [Concomitant]
  3. NEUPRO [Suspect]
     Indication: PARKINSON'S DISEASE
     Dosage: TRANSDERMAL; 8 MG QD TRANSDERMAL; 8 MG QD TRANSDERMAL
     Route: 062
     Dates: start: 20050101
  4. NEUPRO [Suspect]
     Indication: PARKINSON'S DISEASE
     Dosage: TRANSDERMAL; 8 MG QD TRANSDERMAL; 8 MG QD TRANSDERMAL
     Route: 062
     Dates: end: 20100513
  5. RAMIPRIL [Concomitant]
  6. ASPIRIN [Concomitant]
  7. LEVOTHYROXINE SODIUM [Concomitant]
  8. SIMVASTATIN [Concomitant]
  9. TORASEMID [Concomitant]

REACTIONS (7)
  - HYPERSEXUALITY [None]
  - FEAR [None]
  - LIBIDO INCREASED [None]
  - JEALOUS DELUSION [None]
  - HALLUCINATION [None]
  - POOR QUALITY SLEEP [None]
  - PARANOIA [None]
